FAERS Safety Report 12641157 (Version 1)
Quarter: 2016Q3

REPORT INFORMATION
  Report Type: Report from Study
  Country: CA (occurrence: CA)
  Receive Date: 20160810
  Receipt Date: 20160810
  Transmission Date: 20161109
  Serious: Yes (Other)
  Sender: FDA-Public Use
  Company Number: CA-JNJFOC-20160801537

PATIENT
  Age: 62 Year
  Sex: Female
  Weight: 72.8 kg

DRUGS (1)
  1. STELARA [Suspect]
     Active Substance: USTEKINUMAB
     Indication: PSORIASIS
     Route: 058

REACTIONS (4)
  - Lethargy [Unknown]
  - Dizziness [Unknown]
  - Fall [Unknown]
  - Wound infection [Unknown]

NARRATIVE: CASE EVENT DATE: 20160729
